FAERS Safety Report 4307219-9 (Version None)
Quarter: 2004Q1

REPORT INFORMATION
  Report Type: 
  Country: None (occurrence: None)
  Receive Date: 20040223
  Receipt Date: 20030305
  Transmission Date: 20041129
  Serious: Yes (Disabling)
  Sender: FDA-Public Use
  Company Number: WAES 0211USA00958

PATIENT
  Age: 37 Year
  Sex: Male
  Weight: 88.905 kg

DRUGS (1)
  1. PROPECIA [Suspect]
     Indication: ALOPECIA
     Dosage: 1 MG/DAILY/PO
     Route: 048
     Dates: start: 20021029, end: 20021105

REACTIONS (3)
  - ERECTILE DYSFUNCTION [None]
  - ERECTION INCREASED [None]
  - NAUSEA [None]
